FAERS Safety Report 7874616-4 (Version None)
Quarter: 2011Q4

REPORT INFORMATION
  Report Type: 
  Country: None (occurrence: None)
  Receive Date: 20111031
  Receipt Date: 20111025
  Transmission Date: 20120403
  Serious: Yes (Hospitalization, Other)
  Sender: FDA-Public Use
  Company Number: US-PFIZER INC-2011117278

PATIENT
  Sex: Female

DRUGS (2)
  1. CHANTIX [Suspect]
     Indication: SMOKING CESSATION THERAPY
     Dosage: 0.5 MG, UNK
     Dates: start: 20090617, end: 20091001
  2. CHANTIX [Suspect]
     Dosage: 1 MG, UNK
     Dates: start: 20090617, end: 20091001

REACTIONS (9)
  - SUICIDE ATTEMPT [None]
  - DEPRESSION [None]
  - PERSONALITY DISORDER [None]
  - AGGRESSION [None]
  - ANXIETY [None]
  - MENTAL DISORDER [None]
  - SUICIDAL BEHAVIOUR [None]
  - PSYCHOTIC DISORDER [None]
  - ATTENTION DEFICIT/HYPERACTIVITY DISORDER [None]
